FAERS Safety Report 7468487-8 (Version None)
Quarter: 2011Q2

REPORT INFORMATION
  Report Type: 
  Country: None (occurrence: None)
  Receive Date: 20110509
  Receipt Date: 20110426
  Transmission Date: 20111010
  Serious: Yes (Other)
  Sender: FDA-Public Use
  Company Number: NZ-MERCK-1104USA03753

PATIENT
  Age: 71 Year
  Sex: Female

DRUGS (3)
  1. FOSAMAX PLUS D [Suspect]
     Indication: OSTEOPOROSIS
     Route: 048
     Dates: start: 20100801, end: 20100101
  2. FOSAMAX PLUS D [Suspect]
     Route: 048
     Dates: start: 20110101
  3. ACETAMINOPHEN [Concomitant]
     Route: 065

REACTIONS (2)
  - ARTHROPATHY [None]
  - MYALGIA INTERCOSTAL [None]
